FAERS Safety Report 6374044-7 (Version None)
Quarter: 2009Q3

REPORT INFORMATION
  Report Type: 
  Country: None (occurrence: None)
  Receive Date: 20090924
  Receipt Date: 20090713
  Transmission Date: 20100115
  Serious: No
  Sender: FDA-Public Use
  Company Number: US-ASTRAZENECA-2009UW19689

PATIENT
  Age: 35 Year
  Sex: Female
  Weight: 132.4 kg

DRUGS (6)
  1. SEROQUEL [Suspect]
     Indication: SCHIZOPHRENIA
     Dosage: 25 MG TO 250 MG
     Route: 048
     Dates: start: 20020101, end: 20070201
  2. SEROQUEL [Suspect]
     Indication: SLEEP DISORDER
     Dosage: 25 MG TO 250 MG
     Route: 048
     Dates: start: 20020101, end: 20070201
  3. SEROQUEL [Suspect]
     Indication: ANXIETY
     Dosage: 25 MG TO 250 MG
     Route: 048
     Dates: start: 20020101, end: 20070201
  4. GEODON [Concomitant]
  5. RISPERDAL [Concomitant]
  6. ZYPREXA [Concomitant]

REACTIONS (5)
  - ARTHRALGIA [None]
  - BACK PAIN [None]
  - HYPERGLYCAEMIA [None]
  - OBESITY [None]
  - WEIGHT INCREASED [None]
